FAERS Safety Report 20628254 (Version 1)
Quarter: 2022Q1

REPORT INFORMATION
  Report Type: Report from Study
  Country: US (occurrence: US)
  Receive Date: 20220323
  Receipt Date: 20220323
  Transmission Date: 20220424
  Serious: Yes (Life-Threatening, Hospitalization, Other)
  Sender: FDA-Public Use
  Company Number: US-SHIRE-US201820718

PATIENT
  Age: 76 Year
  Sex: Female
  Weight: 56 kg

DRUGS (34)
  1. TEDUGLUTIDE [Suspect]
     Active Substance: TEDUGLUTIDE
     Indication: Short-bowel syndrome
     Dosage: 2.8 MILLIGRAM (TED DAILY DOSE MG KG 0.05, TED DOSES PER WEEK 7)
     Route: 065
     Dates: start: 20160518, end: 20170601
  2. TEDUGLUTIDE [Suspect]
     Active Substance: TEDUGLUTIDE
     Indication: Short-bowel syndrome
     Dosage: 2.8 MILLIGRAM (TED DAILY DOSE MG KG 0.05, TED DOSES PER WEEK 7)
     Route: 065
     Dates: start: 20160518, end: 20170601
  3. TEDUGLUTIDE [Suspect]
     Active Substance: TEDUGLUTIDE
     Indication: Short-bowel syndrome
     Dosage: 2.8 MILLIGRAM (TED DAILY DOSE MG KG 0.05, TED DOSES PER WEEK 7)
     Route: 065
     Dates: start: 20160518, end: 20170601
  4. TEDUGLUTIDE [Suspect]
     Active Substance: TEDUGLUTIDE
     Indication: Short-bowel syndrome
     Dosage: 2.8 MILLIGRAM (TED DAILY DOSE MG KG 0.05, TED DOSES PER WEEK 7)
     Route: 065
     Dates: start: 20160518, end: 20170601
  5. TEDUGLUTIDE [Suspect]
     Active Substance: TEDUGLUTIDE
     Dosage: 5 MILLIGRAM (TED DAILY DOSE MG KG 0.05, TED DOSES PER WEEK 7)
     Route: 065
     Dates: start: 20170606, end: 20170705
  6. TEDUGLUTIDE [Suspect]
     Active Substance: TEDUGLUTIDE
     Dosage: 5 MILLIGRAM (TED DAILY DOSE MG KG 0.05, TED DOSES PER WEEK 7)
     Route: 065
     Dates: start: 20170606, end: 20170705
  7. TEDUGLUTIDE [Suspect]
     Active Substance: TEDUGLUTIDE
     Dosage: 5 MILLIGRAM (TED DAILY DOSE MG KG 0.05, TED DOSES PER WEEK 7)
     Route: 065
     Dates: start: 20170606, end: 20170705
  8. TEDUGLUTIDE [Suspect]
     Active Substance: TEDUGLUTIDE
     Dosage: 5 MILLIGRAM (TED DAILY DOSE MG KG 0.05, TED DOSES PER WEEK 7)
     Route: 065
     Dates: start: 20170606, end: 20170705
  9. TEDUGLUTIDE [Suspect]
     Active Substance: TEDUGLUTIDE
     Dosage: 5 MILLIGRAM, (TED DAILY DOSE MG KG 0.05, TED DOSES PER WEEK 3)
     Route: 065
     Dates: start: 20171004, end: 20180117
  10. TEDUGLUTIDE [Suspect]
     Active Substance: TEDUGLUTIDE
     Dosage: 5 MILLIGRAM, (TED DAILY DOSE MG KG 0.05, TED DOSES PER WEEK 3)
     Route: 065
     Dates: start: 20171004, end: 20180117
  11. TEDUGLUTIDE [Suspect]
     Active Substance: TEDUGLUTIDE
     Dosage: 5 MILLIGRAM, (TED DAILY DOSE MG KG 0.05, TED DOSES PER WEEK 3)
     Route: 065
     Dates: start: 20171004, end: 20180117
  12. TEDUGLUTIDE [Suspect]
     Active Substance: TEDUGLUTIDE
     Dosage: 5 MILLIGRAM, (TED DAILY DOSE MG KG 0.05, TED DOSES PER WEEK 3)
     Route: 065
     Dates: start: 20171004, end: 20180117
  13. TEDUGLUTIDE [Suspect]
     Active Substance: TEDUGLUTIDE
     Dosage: 2.8 MILLIGRAM, (TED DAILY DOSE MG KG 0.05, TED DOSES PER WEEK 7)
     Route: 065
     Dates: start: 20180117, end: 20180514
  14. TEDUGLUTIDE [Suspect]
     Active Substance: TEDUGLUTIDE
     Dosage: 2.8 MILLIGRAM, (TED DAILY DOSE MG KG 0.05, TED DOSES PER WEEK 7)
     Route: 065
     Dates: start: 20180117, end: 20180514
  15. TEDUGLUTIDE [Suspect]
     Active Substance: TEDUGLUTIDE
     Dosage: 2.8 MILLIGRAM, (TED DAILY DOSE MG KG 0.05, TED DOSES PER WEEK 7)
     Route: 065
     Dates: start: 20180117, end: 20180514
  16. TEDUGLUTIDE [Suspect]
     Active Substance: TEDUGLUTIDE
     Dosage: 2.8 MILLIGRAM, (TED DAILY DOSE MG KG 0.05, TED DOSES PER WEEK 7)
     Route: 065
     Dates: start: 20180117, end: 20180514
  17. TEDUGLUTIDE [Suspect]
     Active Substance: TEDUGLUTIDE
     Dosage: 5 MILLIGRAM (TED DAILY DOSE MG KG 0.05, TED DOSES PER WEEK 7)
     Route: 065
     Dates: start: 20180514, end: 20180718
  18. TEDUGLUTIDE [Suspect]
     Active Substance: TEDUGLUTIDE
     Dosage: 5 MILLIGRAM (TED DAILY DOSE MG KG 0.05, TED DOSES PER WEEK 7)
     Route: 065
     Dates: start: 20180514, end: 20180718
  19. TEDUGLUTIDE [Suspect]
     Active Substance: TEDUGLUTIDE
     Dosage: 5 MILLIGRAM (TED DAILY DOSE MG KG 0.05, TED DOSES PER WEEK 7)
     Route: 065
     Dates: start: 20180514, end: 20180718
  20. TEDUGLUTIDE [Suspect]
     Active Substance: TEDUGLUTIDE
     Dosage: 5 MILLIGRAM (TED DAILY DOSE MG KG 0.05, TED DOSES PER WEEK 7)
     Route: 065
     Dates: start: 20180514, end: 20180718
  21. TEDUGLUTIDE [Suspect]
     Active Substance: TEDUGLUTIDE
     Dosage: 1.25 MILLIGRAM (TED DAILY DOSE MG KG 0.05, TED DOSES PER WEEK 7)
     Route: 065
     Dates: start: 20180718, end: 20180730
  22. TEDUGLUTIDE [Suspect]
     Active Substance: TEDUGLUTIDE
     Dosage: 1.25 MILLIGRAM (TED DAILY DOSE MG KG 0.05, TED DOSES PER WEEK 7)
     Route: 065
     Dates: start: 20180718, end: 20180730
  23. TEDUGLUTIDE [Suspect]
     Active Substance: TEDUGLUTIDE
     Dosage: 1.25 MILLIGRAM (TED DAILY DOSE MG KG 0.05, TED DOSES PER WEEK 7)
     Route: 065
     Dates: start: 20180718, end: 20180730
  24. TEDUGLUTIDE [Suspect]
     Active Substance: TEDUGLUTIDE
     Dosage: 1.25 MILLIGRAM (TED DAILY DOSE MG KG 0.05, TED DOSES PER WEEK 7)
     Route: 065
     Dates: start: 20180718, end: 20180730
  25. TEDUGLUTIDE [Suspect]
     Active Substance: TEDUGLUTIDE
     Dosage: 2.8 MILLIGRAM (TED DAILY DOSE MG KG 0.05, TED DOSES PER WEEK 7)
     Route: 065
     Dates: start: 20180730
  26. TEDUGLUTIDE [Suspect]
     Active Substance: TEDUGLUTIDE
     Dosage: 2.8 MILLIGRAM (TED DAILY DOSE MG KG 0.05, TED DOSES PER WEEK 7)
     Route: 065
     Dates: start: 20180730
  27. TEDUGLUTIDE [Suspect]
     Active Substance: TEDUGLUTIDE
     Dosage: 2.8 MILLIGRAM (TED DAILY DOSE MG KG 0.05, TED DOSES PER WEEK 7)
     Route: 065
     Dates: start: 20180730
  28. TEDUGLUTIDE [Suspect]
     Active Substance: TEDUGLUTIDE
     Dosage: 2.8 MILLIGRAM (TED DAILY DOSE MG KG 0.05, TED DOSES PER WEEK 7)
     Route: 065
     Dates: start: 20180730
  29. COUMADIN [Concomitant]
     Active Substance: WARFARIN SODIUM
     Indication: Syncope
  30. COUMADIN [Concomitant]
     Active Substance: WARFARIN SODIUM
     Indication: Circulatory collapse
  31. VITAMIN B6 [Concomitant]
     Active Substance: PYRIDOXINE HYDROCHLORIDE
     Indication: Short-bowel syndrome
  32. LOPERAMIDE [Concomitant]
     Active Substance: LOPERAMIDE
     Indication: Short-bowel syndrome
  33. POTASSIUM ACETATE [Concomitant]
     Active Substance: POTASSIUM ACETATE
     Indication: Electrolyte substitution therapy
  34. MAGNESIUM SULFATE [Concomitant]
     Active Substance: MAGNESIUM SULFATE
     Indication: Electrolyte substitution therapy

REACTIONS (2)
  - Pseudomyxoma peritonei [Not Recovered/Not Resolved]
  - Blood pressure increased [Not Recovered/Not Resolved]

NARRATIVE: CASE EVENT DATE: 20170601
